FAERS Safety Report 11273824 (Version 8)
Quarter: 2016Q1

REPORT INFORMATION
  Report Type: Report from Study
  Country: CN (occurrence: CN)
  Receive Date: 20150715
  Receipt Date: 20160226
  Transmission Date: 20160525
  Serious: Yes (Hospitalization)
  Sender: FDA-Public Use
  Company Number: CN-NAPPMUNDI-GBR-2015-0029365

PATIENT
  Age: 66 Year
  Sex: Male

DRUGS (117)
  1. BLINDED OXYCODONE HCL/NALOXONE HCL CR TAB 40/20MG [Suspect]
     Active Substance: NALOXONE HYDROCHLORIDE\OXYCODONE HYDROCHLORIDE
     Indication: POST HERPETIC NEURALGIA
     Dosage: 25 MG, UNK
     Route: 048
     Dates: start: 20150709, end: 20150709
  2. BLINDED OXY CR TAB 20 MG [Suspect]
     Active Substance: OXYCODONE
     Dosage: OXY/OXN (25 MG, TOTAL DAILY DOSE), QD
     Route: 048
     Dates: start: 20150624, end: 20150624
  3. BLINDED OXY CR TAB 40 MG [Suspect]
     Active Substance: OXYCODONE
     Dosage: OXY/OXN (25 MG, TOTAL DAILY DOSE), QD
     Route: 048
     Dates: start: 20150624, end: 20150624
  4. BLINDED OXY CR TAB 10 MG [Suspect]
     Active Substance: OXYCODONE
     Dosage: OXY (40 MG, TOTAL DAILY DOSE), BID
     Route: 048
     Dates: start: 20150504, end: 20150519
  5. BLINDED OXY CR TAB 40 MG [Suspect]
     Active Substance: OXYCODONE
     Dosage: OXY (30 MG, TOTAL DAILY DOSE), BID
     Route: 048
     Dates: start: 20150424, end: 20150426
  6. BLINDED OXY CR TAB 5 MG [Suspect]
     Active Substance: OXYCODONE
     Dosage: OXY (30 MG, TOTAL DAILY DOSE), BID
     Route: 048
     Dates: start: 20150424, end: 20150426
  7. BLINDED OXYCODONE HCL/NALOXONE HCL CR TAB 10/5MG [Suspect]
     Active Substance: NALOXONE HYDROCHLORIDE\OXYCODONE HYDROCHLORIDE
     Dosage: OXY (10 MG, Q12H)
     Route: 048
     Dates: start: 20150422, end: 20150423
  8. VITAMIN B1 [Concomitant]
     Active Substance: THIAMINE HYDROCHLORIDE
     Indication: NERVOUS SYSTEM DISORDER
     Dosage: 10 MG, UNK
     Route: 030
     Dates: start: 20150705, end: 20150724
  9. BLINDED OXYCODONE HCL/NALOXONE HCL CR TAB 10/5MG [Suspect]
     Active Substance: NALOXONE HYDROCHLORIDE\OXYCODONE HYDROCHLORIDE
     Indication: POST HERPETIC NEURALGIA
     Dosage: 25 MG, UNK
     Route: 048
     Dates: start: 20150709, end: 20150709
  10. BLINDED OXYCODONE HCL/NALOXONE HCL CR TAB20/10MG [Suspect]
     Active Substance: NALOXONE HYDROCHLORIDE\OXYCODONE HYDROCHLORIDE
     Dosage: OXY/OXN (50 MG, TOTAL DAILY DOSE), BID
     Route: 048
     Dates: start: 20150627, end: 20150708
  11. BLINDED NONE [Suspect]
     Active Substance: UNSPECIFIED INGREDIENT
     Dosage: OXY/OXN (100 MG, TOTAL DAILY DOSE), BID
     Route: 048
     Dates: start: 20150622, end: 20150622
  12. BLINDED OXY CR TAB 20 MG [Suspect]
     Active Substance: OXYCODONE
     Dosage: OXY/OXN (100 MG, TOTAL DAILY DOSE), BID
     Route: 048
     Dates: start: 20150622, end: 20150622
  13. BLINDED OXY CR TAB [Suspect]
     Active Substance: OXYCODONE
     Dosage: OXY/OXN (50 MG, TOTAL DAILY DOSE), BID
     Route: 048
     Dates: start: 20150520, end: 20150621
  14. BLINDED OXY CR TAB 10 MG [Suspect]
     Active Substance: OXYCODONE
     Dosage: OXY (40 MG, TOTAL DAILY DOSE), BID
     Route: 048
     Dates: start: 20150427, end: 20150503
  15. BLINDED OXY CR TAB 20 MG [Suspect]
     Active Substance: OXYCODONE
     Dosage: OXY (40 MG, TOTAL DAILY DOSE), BID
     Route: 048
     Dates: start: 20150427, end: 20150503
  16. BLINDED OXY CR TAB 5 MG [Suspect]
     Active Substance: OXYCODONE
     Dosage: OXY (40 MG, TOTAL DAILY DOSE), BID
     Route: 048
     Dates: start: 20150427, end: 20150503
  17. BLINDED OXY CR TAB 10 MG [Suspect]
     Active Substance: OXYCODONE
     Dosage: OXY (30 MG, TOTAL DAILY DOSE), BID
     Route: 048
     Dates: start: 20150424, end: 20150426
  18. BLINDED OXYCODONE HCL/NALOXONE HCL CR TAB20/10MG [Suspect]
     Active Substance: NALOXONE HYDROCHLORIDE\OXYCODONE HYDROCHLORIDE
     Dosage: OXY (10 MG, Q12H)
     Route: 048
     Dates: start: 20150422, end: 20150423
  19. VITAMIN C [Concomitant]
     Active Substance: ASCORBIC ACID
     Indication: SUPPLEMENTATION THERAPY
     Dosage: 2 G, UNK
     Route: 042
     Dates: start: 20150625, end: 20150705
  20. MAGNESIUM [Concomitant]
     Active Substance: MAGNESIUM
     Indication: PSYCHOTIC DISORDER
     Dosage: 0.25 G, UNK
     Route: 048
     Dates: start: 20150705
  21. BLINDED NONE [Suspect]
     Active Substance: UNSPECIFIED INGREDIENT
     Indication: POST HERPETIC NEURALGIA
     Dosage: 25 MG, UNK
     Route: 048
     Dates: start: 20150709, end: 20150709
  22. BLINDED OXY CR TAB 20 MG [Suspect]
     Active Substance: OXYCODONE
     Indication: POST HERPETIC NEURALGIA
     Dosage: 25 MG, UNK
     Route: 048
     Dates: start: 20150709, end: 20150709
  23. BLINDED NONE [Suspect]
     Active Substance: UNSPECIFIED INGREDIENT
     Dosage: OXY/OXN (50 MG, TOTAL DAILY DOSE), BID
     Route: 048
     Dates: start: 20150627, end: 20150708
  24. BLINDED NONE [Suspect]
     Active Substance: UNSPECIFIED INGREDIENT
     Dosage: OXY/OXN (25 MG, TOTAL DAILY DOSE), QD
     Route: 048
     Dates: start: 20150624, end: 20150624
  25. BLINDED OXY CR TAB 5 MG [Suspect]
     Active Substance: OXYCODONE
     Dosage: OXY/OXN (25 MG, TOTAL DAILY DOSE), QD
     Route: 048
     Dates: start: 20150624, end: 20150624
  26. BLINDED OXYCODONE HCL/NALOXONE HCL CR TAB 10/5MG [Suspect]
     Active Substance: NALOXONE HYDROCHLORIDE\OXYCODONE HYDROCHLORIDE
     Dosage: OXY/OXN (25 MG, TOTAL DAILY DOSE), QD
     Route: 048
     Dates: start: 20150624, end: 20150624
  27. BLINDED OXYCODONE HCL/NALOXONE HCL CRTAB 5/2.5MG [Suspect]
     Active Substance: NALOXONE HYDROCHLORIDE\OXYCODONE HYDROCHLORIDE
     Dosage: OXY/OXN (25 MG, TOTAL DAILY DOSE), QD
     Route: 048
     Dates: start: 20150624, end: 20150624
  28. BLINDED OXYCODONE HCL/NALOXONE HCL CR TAB 40/20MG [Suspect]
     Active Substance: NALOXONE HYDROCHLORIDE\OXYCODONE HYDROCHLORIDE
     Dosage: OXY/OXN (100 MG, TOTAL DAILY DOSE), BID
     Route: 048
     Dates: start: 20150622, end: 20150622
  29. BLINDED OXY CR TAB 40 MG [Suspect]
     Active Substance: OXYCODONE
     Dosage: OXY/OXN (50 MG, TOTAL DAILY DOSE), BID
     Route: 048
     Dates: start: 20150520, end: 20150621
  30. BLINDED OXYCODONE HCL/NALOXONE HCL CR TAB [Suspect]
     Active Substance: NALOXONE HYDROCHLORIDE\OXYCODONE HYDROCHLORIDE
     Dosage: OXY/OXN (50 MG, TOTAL DAILY DOSE), BID
     Route: 048
     Dates: start: 20150520, end: 20150621
  31. BLINDED OXYCODONE HCL/NALOXONE HCL CRTAB 5/2.5MG [Suspect]
     Active Substance: NALOXONE HYDROCHLORIDE\OXYCODONE HYDROCHLORIDE
     Dosage: OXY/OXN (50 MG, TOTAL DAILY DOSE), BID
     Route: 048
     Dates: start: 20150520, end: 20150621
  32. BLINDED OXY CR TAB 20 MG [Suspect]
     Active Substance: OXYCODONE
     Dosage: OXY (40 MG, TOTAL DAILY DOSE), BID
     Route: 048
     Dates: start: 20150504, end: 20150519
  33. BLINDED OXY CR TAB 5 MG [Suspect]
     Active Substance: OXYCODONE
     Dosage: OXY (40 MG, TOTAL DAILY DOSE), BID
     Route: 048
     Dates: start: 20150504, end: 20150519
  34. BLINDED OXYCODONE HCL/NALOXONE HCL CR TAB 40/20MG [Suspect]
     Active Substance: NALOXONE HYDROCHLORIDE\OXYCODONE HYDROCHLORIDE
     Dosage: OXY (40 MG, TOTAL DAILY DOSE), BID
     Route: 048
     Dates: start: 20150504, end: 20150519
  35. BLINDED OXY CR TAB [Suspect]
     Active Substance: OXYCODONE
     Dosage: OXY (30 MG, TOTAL DAILY DOSE), BID
     Route: 048
     Dates: start: 20150424, end: 20150426
  36. BLINDED NONE [Suspect]
     Active Substance: UNSPECIFIED INGREDIENT
     Dosage: OXY (10 MG, Q12H)
     Route: 048
     Dates: start: 20150422, end: 20150423
  37. BLINDED OXY CR TAB 20 MG [Suspect]
     Active Substance: OXYCODONE
     Dosage: OXY (10 MG, Q12H)
     Route: 048
     Dates: start: 20150422, end: 20150423
  38. BLINDED OXY CR TAB 5 MG [Suspect]
     Active Substance: OXYCODONE
     Dosage: OXY (10 MG, Q12H)
     Route: 048
     Dates: start: 20150422, end: 20150423
  39. BLINDED OXYCODONE HCL/NALOXONE HCL CRTAB 5/2.5MG [Suspect]
     Active Substance: NALOXONE HYDROCHLORIDE\OXYCODONE HYDROCHLORIDE
     Dosage: OXY (10 MG, Q12H)
     Route: 048
     Dates: start: 20150422, end: 20150423
  40. VITAMIN B6 [Concomitant]
     Active Substance: PYRIDOXINE HYDROCHLORIDE
     Indication: SUPPLEMENTATION THERAPY
     Dosage: 0.2 G, UNK
     Route: 042
     Dates: start: 20150625, end: 20150705
  41. LANSOPRAZOLE. [Concomitant]
     Active Substance: LANSOPRAZOLE
     Indication: PROPHYLAXIS
     Dosage: 30 MG, UNK
     Route: 042
     Dates: start: 20150625, end: 20150705
  42. MONOSIALOTETRAHEXOSYLGANGLIOSIDE SODIUM [Concomitant]
     Indication: CARDIOVASCULAR DISORDER
     Dosage: 60 MG, UNK
     Route: 042
     Dates: start: 20150702, end: 20150705
  43. VITAMIN B12 [Concomitant]
     Active Substance: CYANOCOBALAMIN
     Indication: NERVOUS SYSTEM DISORDER
     Dosage: 500 MCG, UNK
     Route: 030
     Dates: start: 20150705, end: 20150724
  44. BLINDED OXYCODONE HCL/NALOXONE HCL CR TAB [Suspect]
     Active Substance: NALOXONE HYDROCHLORIDE\OXYCODONE HYDROCHLORIDE
     Indication: POST HERPETIC NEURALGIA
     Dosage: 25 MG, UNK
     Route: 048
     Dates: start: 20150709, end: 20150709
  45. BLINDED OXY CR TAB 40 MG [Suspect]
     Active Substance: OXYCODONE
     Dosage: OXY/OXN (50 MG, TOTAL DAILY DOSE), BID
     Route: 048
     Dates: start: 20150627, end: 20150708
  46. BLINDED OXYCODONE HCL/NALOXONE HCL CRTAB 5/2.5MG [Suspect]
     Active Substance: NALOXONE HYDROCHLORIDE\OXYCODONE HYDROCHLORIDE
     Dosage: OXY/OXN (100 MG, TOTAL DAILY DOSE), BID
     Route: 048
     Dates: start: 20150622, end: 20150622
  47. BLINDED OXY CR TAB 20 MG [Suspect]
     Active Substance: OXYCODONE
     Dosage: OXY/OXN (50 MG, TOTAL DAILY DOSE), BID
     Route: 048
     Dates: start: 20150520, end: 20150621
  48. BLINDED OXYCODONE HCL/NALOXONE HCL CR TAB20/10MG [Suspect]
     Active Substance: NALOXONE HYDROCHLORIDE\OXYCODONE HYDROCHLORIDE
     Dosage: OXY (40 MG, TOTAL DAILY DOSE), BID
     Route: 048
     Dates: start: 20150504, end: 20150519
  49. BLINDED OXY CR TAB 40 MG [Suspect]
     Active Substance: OXYCODONE
     Dosage: OXY (40 MG, TOTAL DAILY DOSE), BID
     Route: 048
     Dates: start: 20150427, end: 20150503
  50. BLINDED OXYCODONE HCL/NALOXONE HCL CR TAB [Suspect]
     Active Substance: NALOXONE HYDROCHLORIDE\OXYCODONE HYDROCHLORIDE
     Dosage: OXY (40 MG, TOTAL DAILY DOSE), BID
     Route: 048
     Dates: start: 20150427, end: 20150503
  51. BLINDED OXYCODONE HCL/NALOXONE HCL CR TAB [Suspect]
     Active Substance: NALOXONE HYDROCHLORIDE\OXYCODONE HYDROCHLORIDE
     Dosage: OXY (30 MG, TOTAL DAILY DOSE), BID
     Route: 048
     Dates: start: 20150424, end: 20150426
  52. BLINDED OXYCODONE HCL/NALOXONE HCL CR TAB 40/20MG [Suspect]
     Active Substance: NALOXONE HYDROCHLORIDE\OXYCODONE HYDROCHLORIDE
     Dosage: OXY (10 MG, Q12H)
     Route: 048
     Dates: start: 20150422, end: 20150423
  53. ALPRAZOLAM. [Concomitant]
     Active Substance: ALPRAZOLAM
     Indication: SLEEP DISORDER
     Dosage: 0.4 UNK, UNK
     Route: 048
     Dates: start: 20150705
  54. BLINDED OXY CR TAB [Suspect]
     Active Substance: OXYCODONE
     Indication: POST HERPETIC NEURALGIA
     Dosage: 25 MG, UNK
     Route: 048
     Dates: start: 20150709, end: 20150709
  55. BLINDED OXY CR TAB 10 MG [Suspect]
     Active Substance: OXYCODONE
     Dosage: OXY/OXN (50 MG, TOTAL DAILY DOSE), BID
     Route: 048
     Dates: start: 20150627, end: 20150708
  56. BLINDED OXYCODONE HCL/NALOXONE HCL CRTAB 5/2.5MG [Suspect]
     Active Substance: NALOXONE HYDROCHLORIDE\OXYCODONE HYDROCHLORIDE
     Dosage: OXY/OXN (50 MG, TOTAL DAILY DOSE), BID
     Route: 048
     Dates: start: 20150627, end: 20150708
  57. BLINDED OXYCODONE HCL/NALOXONE HCL CR TAB [Suspect]
     Active Substance: NALOXONE HYDROCHLORIDE\OXYCODONE HYDROCHLORIDE
     Dosage: OXY/OXN (25 MG, TOTAL DAILY DOSE), QD
     Route: 048
     Dates: start: 20150624, end: 20150624
  58. BLINDED OXY CR TAB 10 MG [Suspect]
     Active Substance: OXYCODONE
     Dosage: OXY/OXN (100 MG, TOTAL DAILY DOSE), BID
     Route: 048
     Dates: start: 20150622, end: 20150622
  59. BLINDED OXYCODONE HCL/NALOXONE HCL CR TAB [Suspect]
     Active Substance: NALOXONE HYDROCHLORIDE\OXYCODONE HYDROCHLORIDE
     Dosage: OXY/OXN (100 MG, TOTAL DAILY DOSE), BID
     Route: 048
     Dates: start: 20150622, end: 20150622
  60. BLINDED OXYCODONE HCL/NALOXONE HCL CR TAB 10/5MG [Suspect]
     Active Substance: NALOXONE HYDROCHLORIDE\OXYCODONE HYDROCHLORIDE
     Dosage: OXY/OXN (50 MG, TOTAL DAILY DOSE), BID
     Route: 048
     Dates: start: 20150520, end: 20150621
  61. BLINDED OXYCODONE HCL/NALOXONE HCL CR TAB [Suspect]
     Active Substance: NALOXONE HYDROCHLORIDE\OXYCODONE HYDROCHLORIDE
     Dosage: OXY (40 MG, TOTAL DAILY DOSE), BID
     Route: 048
     Dates: start: 20150504, end: 20150519
  62. BLINDED NONE [Suspect]
     Active Substance: UNSPECIFIED INGREDIENT
     Dosage: OXY (40 MG, TOTAL DAILY DOSE), BID
     Route: 048
     Dates: start: 20150427, end: 20150503
  63. BLINDED OXYCODONE HCL/NALOXONE HCL CR TAB 10/5MG [Suspect]
     Active Substance: NALOXONE HYDROCHLORIDE\OXYCODONE HYDROCHLORIDE
     Dosage: OXY (40 MG, TOTAL DAILY DOSE), BID
     Route: 048
     Dates: start: 20150427, end: 20150503
  64. BLINDED OXYCODONE HCL/NALOXONE HCL CR TAB 40/20MG [Suspect]
     Active Substance: NALOXONE HYDROCHLORIDE\OXYCODONE HYDROCHLORIDE
     Dosage: OXY (40 MG, TOTAL DAILY DOSE), BID
     Route: 048
     Dates: start: 20150427, end: 20150503
  65. BLINDED OXYCODONE HCL/NALOXONE HCL CR TAB20/10MG [Suspect]
     Active Substance: NALOXONE HYDROCHLORIDE\OXYCODONE HYDROCHLORIDE
     Dosage: OXY (40 MG, TOTAL DAILY DOSE), BID
     Route: 048
     Dates: start: 20150427, end: 20150503
  66. BLINDED OXY CR TAB 20 MG [Suspect]
     Active Substance: OXYCODONE
     Dosage: OXY (30 MG, TOTAL DAILY DOSE), BID
     Route: 048
     Dates: start: 20150424, end: 20150426
  67. ALPRAZOLAM. [Concomitant]
     Active Substance: ALPRAZOLAM
     Dosage: 0.4 MG, UNK
     Route: 048
     Dates: start: 20150626, end: 20150630
  68. BLINDED OXY CR TAB 40 MG [Suspect]
     Active Substance: OXYCODONE
     Indication: POST HERPETIC NEURALGIA
     Dosage: 25 MG, UNK
     Route: 048
     Dates: start: 20150709, end: 20150709
  69. BLINDED OXYCODONE HCL/NALOXONE HCL CR TAB20/10MG [Suspect]
     Active Substance: NALOXONE HYDROCHLORIDE\OXYCODONE HYDROCHLORIDE
     Indication: POST HERPETIC NEURALGIA
     Dosage: 25 MG, UNK
     Route: 048
     Dates: start: 20150709, end: 20150709
  70. BLINDED OXY CR TAB 5 MG [Suspect]
     Active Substance: OXYCODONE
     Dosage: OXY/OXN (50 MG, TOTAL DAILY DOSE), BID
     Route: 048
     Dates: start: 20150627, end: 20150708
  71. BLINDED OXYCODONE HCL/NALOXONE HCL CR TAB 10/5MG [Suspect]
     Active Substance: NALOXONE HYDROCHLORIDE\OXYCODONE HYDROCHLORIDE
     Dosage: OXY/OXN (50 MG, TOTAL DAILY DOSE), BID
     Route: 048
     Dates: start: 20150627, end: 20150708
  72. BLINDED OXYCODONE HCL/NALOXONE HCL CR TAB 40/20MG [Suspect]
     Active Substance: NALOXONE HYDROCHLORIDE\OXYCODONE HYDROCHLORIDE
     Dosage: OXY/OXN (25 MG, TOTAL DAILY DOSE), QD
     Route: 048
     Dates: start: 20150624, end: 20150624
  73. BLINDED OXYCODONE HCL/NALOXONE HCL CR TAB20/10MG [Suspect]
     Active Substance: NALOXONE HYDROCHLORIDE\OXYCODONE HYDROCHLORIDE
     Dosage: OXY/OXN (25 MG, TOTAL DAILY DOSE), QD
     Route: 048
     Dates: start: 20150624, end: 20150624
  74. BLINDED OXY CR TAB [Suspect]
     Active Substance: OXYCODONE
     Dosage: OXY/OXN (100 MG, TOTAL DAILY DOSE), BID
     Route: 048
     Dates: start: 20150622, end: 20150622
  75. BLINDED OXY CR TAB 10 MG [Suspect]
     Active Substance: OXYCODONE
     Dosage: OXY/OXN (50 MG, TOTAL DAILY DOSE), BID
     Route: 048
     Dates: start: 20150520, end: 20150621
  76. BLINDED OXYCODONE HCL/NALOXONE HCL CRTAB 5/2.5MG [Suspect]
     Active Substance: NALOXONE HYDROCHLORIDE\OXYCODONE HYDROCHLORIDE
     Dosage: OXY (40 MG, TOTAL DAILY DOSE), BID
     Route: 048
     Dates: start: 20150504, end: 20150519
  77. BLINDED OXYCODONE HCL/NALOXONE HCL CRTAB 5/2.5MG [Suspect]
     Active Substance: NALOXONE HYDROCHLORIDE\OXYCODONE HYDROCHLORIDE
     Dosage: OXY (40 MG, TOTAL DAILY DOSE), BID
     Route: 048
     Dates: start: 20150427, end: 20150503
  78. BLINDED NONE [Suspect]
     Active Substance: UNSPECIFIED INGREDIENT
     Dosage: OXY (30 MG, TOTAL DAILY DOSE), BID
     Route: 048
     Dates: start: 20150424, end: 20150426
  79. BLINDED OXYCODONE HCL/NALOXONE HCL CR TAB20/10MG [Suspect]
     Active Substance: NALOXONE HYDROCHLORIDE\OXYCODONE HYDROCHLORIDE
     Dosage: OXY (30 MG, TOTAL DAILY DOSE), BID
     Route: 048
     Dates: start: 20150424, end: 20150426
  80. BLINDED OXYCODONE HCL/NALOXONE HCL CRTAB 5/2.5MG [Suspect]
     Active Substance: NALOXONE HYDROCHLORIDE\OXYCODONE HYDROCHLORIDE
     Dosage: OXY (30 MG, TOTAL DAILY DOSE), BID
     Route: 048
     Dates: start: 20150424, end: 20150426
  81. BLINDED OXY CR TAB [Suspect]
     Active Substance: OXYCODONE
     Dosage: OXY (10 MG, Q12H)
     Route: 048
     Dates: start: 20150422, end: 20150423
  82. BLINDED OXY CR TAB 10 MG [Suspect]
     Active Substance: OXYCODONE
     Dosage: OXY (10 MG, Q12H)
     Route: 048
     Dates: start: 20150422, end: 20150423
  83. MORPHINE SULFATE. [Suspect]
     Active Substance: MORPHINE SULFATE
     Indication: PRODUCT USED FOR UNKNOWN INDICATION
     Dosage: 100 MG, UNK
     Route: 065
     Dates: start: 20150622
  84. BLINDED OXY CR TAB 5 MG [Suspect]
     Active Substance: OXYCODONE
     Indication: POST HERPETIC NEURALGIA
     Dosage: 25 MG, UNK
     Route: 048
     Dates: start: 20150709, end: 20150709
  85. BLINDED OXY CR TAB [Suspect]
     Active Substance: OXYCODONE
     Dosage: OXY/OXN (50 MG, TOTAL DAILY DOSE), BID
     Route: 048
     Dates: start: 20150627, end: 20150708
  86. BLINDED OXY CR TAB 20 MG [Suspect]
     Active Substance: OXYCODONE
     Dosage: OXY/OXN (50 MG, TOTAL DAILY DOSE), BID
     Route: 048
     Dates: start: 20150627, end: 20150708
  87. BLINDED OXY CR TAB 5 MG [Suspect]
     Active Substance: OXYCODONE
     Dosage: OXY/OXN (100 MG, TOTAL DAILY DOSE), BID
     Route: 048
     Dates: start: 20150622, end: 20150622
  88. BLINDED NONE [Suspect]
     Active Substance: UNSPECIFIED INGREDIENT
     Dosage: OXY/OXN (50 MG, TOTAL DAILY DOSE), BID
     Route: 048
     Dates: start: 20150520, end: 20150621
  89. BLINDED OXY CR TAB 5 MG [Suspect]
     Active Substance: OXYCODONE
     Dosage: OXY/OXN (50 MG, TOTAL DAILY DOSE), BID
     Route: 048
     Dates: start: 20150520, end: 20150621
  90. BLINDED OXYCODONE HCL/NALOXONE HCL CR TAB 40/20MG [Suspect]
     Active Substance: NALOXONE HYDROCHLORIDE\OXYCODONE HYDROCHLORIDE
     Dosage: OXY/OXN (50 MG, TOTAL DAILY DOSE), BID
     Route: 048
     Dates: start: 20150520, end: 20150621
  91. BLINDED OXY CR TAB [Suspect]
     Active Substance: OXYCODONE
     Dosage: OXY (40 MG, TOTAL DAILY DOSE), BID
     Route: 048
     Dates: start: 20150504, end: 20150519
  92. BLINDED OXY CR TAB [Suspect]
     Active Substance: OXYCODONE
     Dosage: OXY (40 MG, TOTAL DAILY DOSE), BID
     Route: 048
     Dates: start: 20150427, end: 20150503
  93. BLINDED OXYCODONE HCL/NALOXONE HCL CR TAB 40/20MG [Suspect]
     Active Substance: NALOXONE HYDROCHLORIDE\OXYCODONE HYDROCHLORIDE
     Dosage: OXY (30 MG, TOTAL DAILY DOSE), BID
     Route: 048
     Dates: start: 20150424, end: 20150426
  94. BLINDED OXYCODONE HCL/NALOXONE HCL CR TAB [Suspect]
     Active Substance: NALOXONE HYDROCHLORIDE\OXYCODONE HYDROCHLORIDE
     Dosage: OXY (10 MG, Q12H)
     Route: 048
     Dates: start: 20150422, end: 20150423
  95. PREGABALIN. [Suspect]
     Active Substance: PREGABALIN
     Indication: HERPES ZOSTER
     Dosage: 75 MG, UNK
     Route: 048
     Dates: start: 20150623, end: 20150624
  96. PREGABALIN. [Suspect]
     Active Substance: PREGABALIN
     Dosage: 600 MG, UNK
     Route: 048
     Dates: start: 20150622, end: 20150622
  97. ALPROSTADIL. [Concomitant]
     Active Substance: ALPROSTADIL
     Indication: CARDIOVASCULAR DISORDER
     Dosage: 10 MCG, UNK
     Route: 042
     Dates: start: 20150626, end: 20150705
  98. DIAZEPAM. [Concomitant]
     Active Substance: DIAZEPAM
     Indication: SEDATION
     Dosage: 5 MG, UNK
     Route: 030
     Dates: start: 20150705, end: 20150705
  99. LIDOCAINE. [Concomitant]
     Active Substance: LIDOCAINE
     Indication: ANALGESIC THERAPY
     Dosage: UNK
     Dates: start: 20150702
  100. OLANZAPINE. [Concomitant]
     Active Substance: OLANZAPINE
     Indication: PSYCHOTIC DISORDER
     Dosage: 10 MG, UNK
     Route: 048
     Dates: start: 20150705
  101. DULOXETINE HYDROCHLORIDE. [Concomitant]
     Active Substance: DULOXETINE HYDROCHLORIDE
     Indication: PSYCHOTIC DISORDER
     Dosage: 30 MG, UNK
     Route: 048
     Dates: start: 20150705, end: 20150724
  102. BLINDED OXY CR TAB 10 MG [Suspect]
     Active Substance: OXYCODONE
     Indication: POST HERPETIC NEURALGIA
     Dosage: 25 MG, UNK
     Route: 048
     Dates: start: 20150709, end: 20150709
  103. BLINDED OXYCODONE HCL/NALOXONE HCL CRTAB 5/2.5MG [Suspect]
     Active Substance: NALOXONE HYDROCHLORIDE\OXYCODONE HYDROCHLORIDE
     Indication: POST HERPETIC NEURALGIA
     Dosage: 25 MG, UNK
     Route: 048
     Dates: start: 20150709, end: 20150709
  104. BLINDED OXYCODONE HCL/NALOXONE HCL CR TAB [Suspect]
     Active Substance: NALOXONE HYDROCHLORIDE\OXYCODONE HYDROCHLORIDE
     Dosage: OXY/OXN (50 MG, TOTAL DAILY DOSE), BID
     Route: 048
     Dates: start: 20150627, end: 20150708
  105. BLINDED OXYCODONE HCL/NALOXONE HCL CR TAB 40/20MG [Suspect]
     Active Substance: NALOXONE HYDROCHLORIDE\OXYCODONE HYDROCHLORIDE
     Dosage: OXY/OXN (50 MG, TOTAL DAILY DOSE), BID
     Route: 048
     Dates: start: 20150627, end: 20150708
  106. BLINDED OXY CR TAB [Suspect]
     Active Substance: OXYCODONE
     Dosage: OXY/OXN (25 MG, TOTAL DAILY DOSE), QD
     Route: 048
     Dates: start: 20150624, end: 20150624
  107. BLINDED OXY CR TAB 10 MG [Suspect]
     Active Substance: OXYCODONE
     Dosage: OXY/OXN (25 MG, TOTAL DAILY DOSE), QD
     Route: 048
     Dates: start: 20150624, end: 20150624
  108. BLINDED OXY CR TAB 40 MG [Suspect]
     Active Substance: OXYCODONE
     Dosage: OXY/OXN (100 MG, TOTAL DAILY DOSE), BID
     Route: 048
     Dates: start: 20150622, end: 20150622
  109. BLINDED OXYCODONE HCL/NALOXONE HCL CR TAB 10/5MG [Suspect]
     Active Substance: NALOXONE HYDROCHLORIDE\OXYCODONE HYDROCHLORIDE
     Dosage: OXY/OXN (100 MG, TOTAL DAILY DOSE), BID
     Route: 048
     Dates: start: 20150622, end: 20150622
  110. BLINDED OXYCODONE HCL/NALOXONE HCL CR TAB20/10MG [Suspect]
     Active Substance: NALOXONE HYDROCHLORIDE\OXYCODONE HYDROCHLORIDE
     Dosage: OXY/OXN (100 MG, TOTAL DAILY DOSE), BID
     Route: 048
     Dates: start: 20150622, end: 20150622
  111. BLINDED OXYCODONE HCL/NALOXONE HCL CR TAB20/10MG [Suspect]
     Active Substance: NALOXONE HYDROCHLORIDE\OXYCODONE HYDROCHLORIDE
     Dosage: OXY/OXN (50 MG, TOTAL DAILY DOSE), BID
     Route: 048
     Dates: start: 20150520, end: 20150621
  112. BLINDED NONE [Suspect]
     Active Substance: UNSPECIFIED INGREDIENT
     Dosage: OXY (40 MG, TOTAL DAILY DOSE), BID
     Route: 048
     Dates: start: 20150504, end: 20150519
  113. BLINDED OXY CR TAB 40 MG [Suspect]
     Active Substance: OXYCODONE
     Dosage: OXY (40 MG, TOTAL DAILY DOSE), BID
     Route: 048
     Dates: start: 20150504, end: 20150519
  114. BLINDED OXYCODONE HCL/NALOXONE HCL CR TAB 10/5MG [Suspect]
     Active Substance: NALOXONE HYDROCHLORIDE\OXYCODONE HYDROCHLORIDE
     Dosage: OXY (40 MG, TOTAL DAILY DOSE), BID
     Route: 048
     Dates: start: 20150504, end: 20150519
  115. BLINDED OXYCODONE HCL/NALOXONE HCL CR TAB 10/5MG [Suspect]
     Active Substance: NALOXONE HYDROCHLORIDE\OXYCODONE HYDROCHLORIDE
     Dosage: OXY (30 MG, TOTAL DAILY DOSE), BID
     Route: 048
     Dates: start: 20150424, end: 20150426
  116. BLINDED OXY CR TAB 40 MG [Suspect]
     Active Substance: OXYCODONE
     Dosage: OXY (10 MG, Q12H)
     Route: 048
     Dates: start: 20150422, end: 20150423
  117. PREGABALIN. [Suspect]
     Active Substance: PREGABALIN
     Dosage: 75 MG, UNK
     Route: 048
     Dates: start: 20150411, end: 20150621

REACTIONS (1)
  - Cerebral disorder [Recovered/Resolved with Sequelae]

NARRATIVE: CASE EVENT DATE: 20150625
